FAERS Safety Report 8355328 (Version 3)
Quarter: 2012Q4

REPORT INFORMATION
  Report Type: 
  Country: US (occurrence: US)
  Receive Date: 20120126
  Receipt Date: 20121102
  Transmission Date: 20130627
  Serious: Yes (Other)
  Sender: FDA-Public Use
  Company Number: US-PFIZER INC-2012019150

PATIENT
  Age: 57 Year
  Sex: Male

DRUGS (8)
  1. CHANTIX [Suspect]
     Indication: SMOKING CESSATION THERAPY
     Dosage: starter pack and continuing packs
     Dates: start: 2008, end: 20080304
  2. LISINOPRIL [Concomitant]
     Indication: BLOOD PRESSURE HIGH
     Dosage: UNK
     Dates: start: 2004, end: 2009
  3. PRILOSEC [Concomitant]
     Indication: GASTROOESOPHAGEAL REFLUX DISEASE
     Dosage: UNK
     Dates: start: 2004
  4. HYDROCHLOROTHIAZIDE [Concomitant]
     Indication: BLOOD PRESSURE HIGH
     Dosage: UNK
     Dates: start: 2005, end: 2009
  5. HYDROCHLOROTHIAZIDE [Concomitant]
     Indication: EDEMA
  6. ULTRAM [Concomitant]
     Indication: PAIN
     Dosage: UNK
     Dates: start: 2007, end: 2011
  7. NORVASC [Concomitant]
     Indication: BLOOD PRESSURE HIGH
     Dosage: UNK
     Dates: start: 2006, end: 2009
  8. VITAMIN B1 [Concomitant]
     Indication: VITAMIN B1
     Dosage: UNK
     Dates: start: 2007

REACTIONS (4)
  - Suicidal ideation [Not Recovered/Not Resolved]
  - Depression [Not Recovered/Not Resolved]
  - Panic attack [Not Recovered/Not Resolved]
  - Anxiety [Not Recovered/Not Resolved]
